FAERS Safety Report 19771722 (Version 1)
Quarter: 2021Q3

REPORT INFORMATION
  Report Type: Spontaneous
  Country: CA (occurrence: CA)
  Receive Date: 20210831
  Receipt Date: 20210831
  Transmission Date: 20211014
  Serious: Yes (Death)
  Sender: FDA-Public Use
  Company Number: CA-MYLANLABS-2021M1057165

PATIENT
  Sex: Male
  Weight: 86.6 kg

DRUGS (1)
  1. OGIVRI [Suspect]
     Active Substance: TRASTUZUMAB-DKST
     Indication: METASTATIC GASTRIC CANCER
     Dosage: UNK
     Dates: start: 20200925

REACTIONS (1)
  - Death [Fatal]
